FAERS Safety Report 9221976 (Version 1)
Quarter: 2013Q2

REPORT INFORMATION
  Report Type: Spontaneous
  Country: US (occurrence: US)
  Receive Date: 20130410
  Receipt Date: 20130410
  Transmission Date: 20140414
  Serious: No
  Sender: FDA-Public Use
  Company Number: US-PFIZER INC-2013108426

PATIENT
  Age: 33 Year
  Sex: Male
  Weight: 113 kg

DRUGS (4)
  1. PROTONIX [Suspect]
     Indication: GASTROOESOPHAGEAL REFLUX DISEASE
     Dosage: 40 MG, DAILY
     Dates: start: 2013
  2. LYRICA [Suspect]
     Indication: FIBROMYALGIA
     Dosage: 100 MG, 2X/DAY
  3. CRESTOR [Concomitant]
     Indication: BLOOD CHOLESTEROL INCREASED
     Dosage: 10 MG, DAILY
     Dates: start: 2011
  4. TOPROL XL [Concomitant]
     Indication: BLOOD PRESSURE ABNORMAL
     Dosage: 200 MG, DAILY

REACTIONS (3)
  - Fall [Unknown]
  - Hand fracture [Recovering/Resolving]
  - Pain [Recovered/Resolved]
